FAERS Safety Report 12603642 (Version 1)
Quarter: 2016Q3

REPORT INFORMATION
  Report Type: Report from Study
  Country: US (occurrence: US)
  Receive Date: 20160728
  Receipt Date: 20160728
  Transmission Date: 20161109
  Serious: Yes (Hospitalization)
  Sender: FDA-Public Use
  Company Number: US-MALLINCKRODT-T201603213

PATIENT
  Age: 42 Year
  Sex: Female

DRUGS (1)
  1. REPOSITORY CORTICOTROPIN INJECTION [Suspect]
     Active Substance: CORTICOTROPIN
     Indication: MULTIPLE SCLEROSIS
     Dosage: 80 UNITS/ML
     Route: 030
     Dates: start: 201607, end: 201607

REACTIONS (3)
  - Swelling [Unknown]
  - Skin wound [Unknown]
  - Pain [Unknown]

NARRATIVE: CASE EVENT DATE: 201607
